FAERS Safety Report 14804177 (Version 2)
Quarter: 2018Q2

REPORT INFORMATION
  Report Type: Report from Study
  Country: US (occurrence: US)
  Receive Date: 20180425
  Receipt Date: 20180529
  Transmission Date: 20180711
  Serious: Yes (Other)
  Sender: FDA-Public Use
  Company Number: PHHY2018US007166

PATIENT
  Age: 48 Year
  Sex: Female

DRUGS (1)
  1. GILENYA [Suspect]
     Active Substance: FINGOLIMOD HYDROCHLORIDE
     Indication: MULTIPLE SCLEROSIS
     Dosage: UNK, QD
     Route: 048

REACTIONS (24)
  - Dizziness [Recovered/Resolved]
  - Lentigo [Unknown]
  - Blood alkaline phosphatase increased [Recovered/Resolved]
  - Sebaceous hyperplasia [Unknown]
  - Dysplastic naevus [Unknown]
  - Palpitations [Recovered/Resolved]
  - Serotonin syndrome [Recovered/Resolved]
  - Nausea [Recovered/Resolved]
  - Syncope [Recovered/Resolved]
  - Alanine aminotransferase increased [Recovered/Resolved]
  - White blood cell count decreased [Unknown]
  - Seborrhoeic keratosis [Unknown]
  - Dry mouth [Unknown]
  - Blood alkaline phosphatase increased [Unknown]
  - Aspartate aminotransferase increased [Unknown]
  - Anxiety [Unknown]
  - Cafe au lait spots [Unknown]
  - Scar [Unknown]
  - Abdominal pain upper [Recovered/Resolved]
  - Melanocytic naevus [Unknown]
  - Haemangioma of skin [Unknown]
  - Diarrhoea [Recovered/Resolved]
  - Aspartate aminotransferase increased [Recovered/Resolved]
  - Alanine aminotransferase increased [Unknown]

NARRATIVE: CASE EVENT DATE: 20171024
